FAERS Safety Report 16795992 (Version 1)
Quarter: 2019Q3

REPORT INFORMATION
  Report Type: Spontaneous
  Country: AT (occurrence: AT)
  Receive Date: 20190911
  Receipt Date: 20190911
  Transmission Date: 20191005
  Serious: Yes (Other)
  Sender: FDA-Public Use
  Company Number: AT-STALLERGENES SAS-2074342

PATIENT
  Age: 22 Year
  Sex: Male

DRUGS (1)
  1. ORALAIR [Suspect]
     Active Substance: ANTHOXANTHUM ODORATUM POLLEN\DACTYLIS GLOMERATA POLLEN\LOLIUM PERENNE POLLEN\PHLEUM PRATENSE POLLEN\POA PRATENSIS POLLEN
     Indication: CONJUNCTIVITIS ALLERGIC
     Route: 060
     Dates: start: 201902

REACTIONS (1)
  - Oral papilloma [Not Recovered/Not Resolved]

NARRATIVE: CASE EVENT DATE: 201908
